FAERS Safety Report 4950312-8 (Version None)
Quarter: 2006Q1

REPORT INFORMATION
  Report Type: 
  Country: None (occurrence: None)
  Receive Date: 20060322
  Receipt Date: 20060315
  Transmission Date: 20060701
  Serious: Yes (Other)
  Sender: FDA-Public Use
  Company Number: PHEH2006US03439

PATIENT
  Age: 72 Year
  Sex: Female

DRUGS (6)
  1. ZELNORM [Suspect]
     Indication: COLONIC ATONY
     Dosage: UNK, UNK
     Dates: start: 20060101
  2. PAXIL [Concomitant]
     Indication: DEPRESSION
     Dosage: 20 MG + 1/4 20 MG QD
     Dates: end: 20060309
  3. PAXIL [Concomitant]
     Dosage: 20 MG + 1/2 20 MG QD
     Dates: start: 20060310
  4. LEVOXYL [Concomitant]
  5. CLONIDINE [Concomitant]
  6. NEURONTIN [Concomitant]

REACTIONS (2)
  - CONCOMITANT DISEASE PROGRESSION [None]
  - DEPRESSION [None]
